FAERS Safety Report 15657906 (Version 1)
Quarter: 2018Q4

REPORT INFORMATION
  Report Type: Spontaneous
  Country: US (occurrence: US)
  Receive Date: 20181126
  Receipt Date: 20181126
  Transmission Date: 20190205
  Serious: No
  Sender: FDA-Public Use
  Company Number: US-THE RITEDOSE CORPORATION-2018RIT000095

PATIENT

DRUGS (1)
  1. IPRATROPIUM BROMIDE AND ALBUTEROL SULFATE [Suspect]
     Active Substance: ALBUTEROL SULFATE\IPRATROPIUM BROMIDE
     Indication: PRODUCT USED FOR UNKNOWN INDICATION

REACTIONS (7)
  - Incorrect product administration duration [Unknown]
  - Glucose tolerance impaired [Unknown]
  - Epinephrine increased [Unknown]
  - Ill-defined disorder [Unknown]
  - Product substitution issue [Unknown]
  - Blood glucose decreased [Unknown]
  - Product packaging quantity issue [Unknown]
